FAERS Safety Report 7550901-0 (Version None)
Quarter: 2011Q2

REPORT INFORMATION
  Report Type: 
  Country: None (occurrence: None)
  Receive Date: 20110609
  Receipt Date: 20110603
  Transmission Date: 20111010
  Serious: Yes (Other)
  Sender: FDA-Public Use
  Company Number: 2011S1000404

PATIENT
  Age: 83 Year
  Sex: Female

DRUGS (4)
  1. PREMARIN [Concomitant]
  2. LIVALO [Suspect]
     Indication: BLOOD CHOLESTEROL INCREASED
     Dosage: 2 MG;	;PO
     Route: 048
     Dates: start: 20110301
  3. CYMBALTA [Concomitant]
  4. MELOXICAM [Concomitant]

REACTIONS (7)
  - ACTIVITIES OF DAILY LIVING IMPAIRED [None]
  - ASTHENIA [None]
  - ARTHROPATHY [None]
  - INSOMNIA [None]
  - NEUROPATHY PERIPHERAL [None]
  - ARTHRALGIA [None]
  - MUSCLE SPASMS [None]
